FAERS Safety Report 14451938 (Version 1)
Quarter: 2018Q1

REPORT INFORMATION
  Report Type: Spontaneous
  Country: US (occurrence: US)
  Receive Date: 20180126
  Receipt Date: 20180126
  Transmission Date: 20180509
  Serious: No
  Sender: FDA-Public Use
  Company Number: None

PATIENT
  Age: 7 Year
  Sex: Male

DRUGS (2)
  1. VIGABATRIN. [Suspect]
     Active Substance: VIGABATRIN
     Indication: EPILEPSY
     Dosage: 950MG AM 950MG PM 1000MG BEDTIME DIVIDING DOSES ORALLY
     Route: 048
     Dates: start: 20180117, end: 20180125
  2. VIGABATRIN. [Suspect]
     Active Substance: VIGABATRIN
     Indication: INFANTILE SPASMS
     Dosage: 950MG AM 950MG PM 1000MG BEDTIME DIVIDING DOSES ORALLY
     Route: 048
     Dates: start: 20180117, end: 20180125

REACTIONS (2)
  - Product substitution issue [None]
  - Seizure [None]

NARRATIVE: CASE EVENT DATE: 20180122
